FAERS Safety Report 26206146 (Version 1)
Quarter: 2025Q4

REPORT INFORMATION
  Report Type: Spontaneous
  Country: US (occurrence: US)
  Receive Date: 20251229
  Receipt Date: 20251229
  Transmission Date: 20260117
  Serious: Yes (Hospitalization, Other)
  Sender: AUROBINDO
  Company Number: US-MLMSERVICE-20251208-PI742288-00271-1

PATIENT
  Age: 74 Year
  Sex: Male

DRUGS (5)
  1. PREDNISONE [Suspect]
     Active Substance: PREDNISONE
     Indication: Amyotrophic lateral sclerosis
     Dosage: HIGH-DOSE
     Route: 065
     Dates: start: 202401, end: 2024
  2. PREDNISONE [Suspect]
     Active Substance: PREDNISONE
     Dosage: HIGH-DOSE
     Route: 065
  3. BARICITINIB [Suspect]
     Active Substance: BARICITINIB
     Indication: Immunosuppressant drug therapy
     Route: 065
  4. POSACONAZOLE [Concomitant]
     Active Substance: POSACONAZOLE
     Indication: Product used for unknown indication
     Dosage: 300 MILLIGRAM, DAILY
     Route: 065
  5. NORCO [Concomitant]
     Active Substance: ACETAMINOPHEN\HYDROCODONE BITARTRATE
     Indication: Back pain
     Dosage: UNK (5/325 MG FOUR TIMES DAILY)
     Route: 065

REACTIONS (2)
  - Osteomyelitis [Recovering/Resolving]
  - Candida osteomyelitis [Recovering/Resolving]

NARRATIVE: CASE EVENT DATE: 20240401
